FAERS Safety Report 6918794-X (Version None)
Quarter: 2010Q3

REPORT INFORMATION
  Report Type: 
  Country: None (occurrence: None)
  Receive Date: 20100811
  Receipt Date: 20100805
  Transmission Date: 20110219
  Serious: Yes (Hospitalization)
  Sender: FDA-Public Use
  Company Number: FR-PFIZER INC-2010098278

PATIENT
  Age: 76 Year
  Sex: Female

DRUGS (4)
  1. TAHOR [Suspect]
     Dosage: 40 MG, 1X/DAY
     Route: 048
     Dates: start: 20090101, end: 20100601
  2. IXPRIM [Suspect]
     Dosage: UNK
     Route: 048
     Dates: start: 20100401, end: 20100601
  3. LASIX [Suspect]
     Dosage: 20 MG, 1X/DAY
     Route: 048
     Dates: start: 20090601, end: 20100601
  4. ALDACTONE [Concomitant]
     Dosage: UNK
     Route: 048
     Dates: start: 20100401, end: 20100601

REACTIONS (2)
  - HENOCH-SCHONLEIN PURPURA [None]
  - LEUKOCYTOCLASTIC VASCULITIS [None]
